FAERS Safety Report 11185075 (Version 1)
Quarter: 2015Q2

REPORT INFORMATION
  Report Type: Spontaneous
  Country: US (occurrence: None)
  Receive Date: 20150611
  Receipt Date: 20150611
  Transmission Date: 20150821
  Serious: No
  Sender: FDA-Public Use
  Company Number: None

PATIENT
  Age: 62 Year
  Sex: Female
  Weight: 70.31 kg

DRUGS (6)
  1. MUCINEX [Concomitant]
     Active Substance: GUAIFENESIN
  2. ZANTAC [Concomitant]
     Active Substance: RANITIDINE HYDROCHLORIDE
  3. MULTI VITAMINS [Concomitant]
  4. ZYRTEC [Concomitant]
     Active Substance: CETIRIZINE HYDROCHLORIDE
  5. SINGULAIR [Suspect]
     Active Substance: MONTELUKAST SODIUM
     Indication: ASTHMA PROPHYLAXIS
     Dosage: 1 PILL
     Route: 048
     Dates: start: 20150515, end: 20150609
  6. NASALCROM [Concomitant]
     Active Substance: CROMOLYN SODIUM

REACTIONS (4)
  - Nightmare [None]
  - Agitation [None]
  - Mental disorder [None]
  - Irritability [None]

NARRATIVE: CASE EVENT DATE: 20150608
